FAERS Safety Report 25805693 (Version 1)
Quarter: 2025Q3

REPORT INFORMATION
  Report Type: Spontaneous
  Country: EU (occurrence: EU)
  Receive Date: 20250916
  Receipt Date: 20250916
  Transmission Date: 20251020
  Serious: Yes (Other)
  Sender: EMD SERONO INC
  Company Number: EU-Merck Healthcare KGaA-2025046122

PATIENT
  Age: 55 Year
  Sex: Female

DRUGS (2)
  1. LEVOTHYROXINE [Suspect]
     Active Substance: LEVOTHYROXINE
     Indication: Post procedural hypothyroidism
  2. IODINE [Suspect]
     Active Substance: IODINE
     Indication: Product used for unknown indication

REACTIONS (3)
  - Metastases to bone [Unknown]
  - Periarthritis [Unknown]
  - Blood thyroid stimulating hormone decreased [Unknown]
